APPROVED DRUG PRODUCT: OLANZAPINE
Active Ingredient: OLANZAPINE
Strength: 2.5MG
Dosage Form/Route: TABLET;ORAL
Application: A202862 | Product #001 | TE Code: AB
Applicant: MACLEODS PHARMACEUTICALS LTD
Approved: Aug 15, 2014 | RLD: No | RS: No | Type: RX